FAERS Safety Report 4686783-4 (Version None)
Quarter: 2005Q2

REPORT INFORMATION
  Report Type: 
  Country: None (occurrence: None)
  Receive Date: 20050608
  Receipt Date: 20050526
  Transmission Date: 20051028
  Serious: Yes (Hospitalization)
  Sender: FDA-Public Use
  Company Number: 2005082286

PATIENT
  Age: 79 Year
  Sex: Male

DRUGS (1)
  1. FRAGMIN [Suspect]
     Indication: ILL-DEFINED DISORDER
     Dosage: 5000 I.U. (5000 I.U., 1 IN 1 D), PARENTERAL
     Route: 051
     Dates: start: 20050511, end: 20050515

REACTIONS (3)
  - ECCHYMOSIS [None]
  - KNEE ARTHROPLASTY [None]
  - THROMBOSIS [None]
